FAERS Safety Report 25800734 (Version 2)
Quarter: 2025Q3

REPORT INFORMATION
  Report Type: Spontaneous
  Country: CA (occurrence: CA)
  Receive Date: 20250915
  Receipt Date: 20250926
  Transmission Date: 20251020
  Serious: Yes (Hospitalization, Other)
  Sender: AUROBINDO
  Company Number: CA-AUROBINDO-AUR-APL-2025-046195

PATIENT
  Age: 39 Year
  Sex: Female

DRUGS (7)
  1. TOPIRAMATE [Suspect]
     Active Substance: TOPIRAMATE
     Indication: Acute promyelocytic leukaemia
     Dosage: 50 MILLIGRAM, TWO TIMES A DAY
     Route: 048
  2. ARSENIC TRIOXIDE [Suspect]
     Active Substance: ARSENIC TRIOXIDE
     Indication: Acute promyelocytic leukaemia
     Dosage: 0.15 MILLIGRAM/KILOGRAM, ONCE A DAY
     Route: 065
  3. IDARUBICIN [Suspect]
     Active Substance: IDARUBICIN
     Indication: Acute promyelocytic leukaemia
     Dosage: 12.0 MG/M2, ONCE A DAY
     Route: 065
  4. PREDNISONE [Suspect]
     Active Substance: PREDNISONE
     Indication: Acute promyelocytic leukaemia
     Dosage: 1.0 MILLIGRAM/KILOGRAM, ONCE A DAY
     Route: 065
  5. TRETINOIN [Suspect]
     Active Substance: TRETINOIN
     Indication: Acute promyelocytic leukaemia
     Dosage: 45.9 MG/M2, ONCE A DAY
     Route: 065
  6. TRETINOIN [Suspect]
     Active Substance: TRETINOIN
     Route: 065
  7. URSODIOL [Suspect]
     Active Substance: URSODIOL
     Indication: Cholestasis of pregnancy
     Route: 065

REACTIONS (11)
  - Febrile neutropenia [Unknown]
  - Maternal exposure during pregnancy [Unknown]
  - Normal newborn [Unknown]
  - Intracranial pressure increased [Unknown]
  - Mucosal inflammation [Unknown]
  - Off label use [Unknown]
  - Vomiting [Unknown]
  - Headache [Unknown]
  - Visual impairment [Unknown]
  - Thrombocytopenia [Unknown]
  - Photophobia [Unknown]
